FAERS Safety Report 23660321 (Version 1)
Quarter: 2024Q1

REPORT INFORMATION
  Report Type: Spontaneous
  Country: JP (occurrence: JP)
  Receive Date: 20240321
  Receipt Date: 20240321
  Transmission Date: 20240410
  Serious: Yes (Hospitalization)
  Sender: FDA-Public Use
  Company Number: JP-JNJFOC-20240359780

PATIENT
  Age: 72 Year
  Sex: Female

DRUGS (3)
  1. SIMPONI [Suspect]
     Active Substance: GOLIMUMAB
     Indication: Rheumatoid arthritis
     Route: 058
     Dates: start: 20230315, end: 20240315
  2. METHOTREXATE [Suspect]
     Active Substance: METHOTREXATE
     Indication: Rheumatoid arthritis
     Dosage: 8MG
     Route: 048
     Dates: end: 20240214
  3. METHOTREXATE [Suspect]
     Active Substance: METHOTREXATE
     Indication: Rheumatoid arthritis
     Dosage: 10MG
     Route: 048
     Dates: start: 202402, end: 20240313

REACTIONS (3)
  - Interleukin level increased [Unknown]
  - Matrix metalloproteinase-3 increased [Unknown]
  - Joint swelling [Unknown]

NARRATIVE: CASE EVENT DATE: 20240201
